FAERS Safety Report 25070951 (Version 1)
Quarter: 2025Q1

REPORT INFORMATION
  Report Type: Spontaneous
  Country: SE (occurrence: SE)
  Receive Date: 20250312
  Receipt Date: 20250312
  Transmission Date: 20250408
  Serious: Yes (Other)
  Sender: TEVA
  Company Number: None

PATIENT
  Age: 70 Year
  Sex: Male

DRUGS (2)
  1. ACITRETIN [Suspect]
     Active Substance: ACITRETIN
     Indication: Psoriasis
     Route: 065
     Dates: start: 20240727
  2. MOMETASONE FUROATE [Concomitant]
     Active Substance: MOMETASONE FUROATE
     Indication: Product used for unknown indication
     Route: 065

REACTIONS (4)
  - Rhinorrhoea [Recovering/Resolving]
  - Epistaxis [Recovering/Resolving]
  - Back pain [Recovering/Resolving]
  - Lip dry [Recovering/Resolving]

NARRATIVE: CASE EVENT DATE: 20240701
